FAERS Safety Report 5144227-2 (Version None)
Quarter: 2006Q4

REPORT INFORMATION
  Report Type: 
  Country: None (occurrence: None)
  Receive Date: 20061106
  Receipt Date: 20061026
  Transmission Date: 20070319
  Serious: Yes (Death)
  Sender: FDA-Public Use
  Company Number: NL-ROCHE-468863

PATIENT
  Age: 73 Year
  Sex: Male

DRUGS (8)
  1. CAPECITABINE [Suspect]
     Dosage: GIVEN ON DAYS 1-14 OF EACH 3-WEEK-CYCLE.
     Route: 048
     Dates: start: 20061003
  2. BEVACIZUMAB [Suspect]
     Dosage: GIVEN ON DAY 1 OF EACH 3-WEEK-CYCLE.
     Route: 042
     Dates: start: 20061003
  3. OXALIPLATIN [Suspect]
     Dosage: GIVEN ON DAY 1 OF EACH 3-WEEK-CYCLE.
     Route: 042
     Dates: start: 20061003
  4. CETUXIMAB [Suspect]
     Dosage: LOADING DOSE GIVEN ON DAY1 OF CYCLE1.
     Route: 042
     Dates: start: 20061003
  5. OXAZEPAM [Concomitant]
  6. SIMVASTATIN [Concomitant]
  7. BISOPROLOL FUMARATE [Concomitant]
  8. ANUSOL CREAM [Concomitant]

REACTIONS (4)
  - DEHYDRATION [None]
  - DIARRHOEA [None]
  - LEUKOPENIA [None]
  - THROMBOCYTOPENIA [None]
